FAERS Safety Report 25768629 (Version 1)
Quarter: 2025Q3

REPORT INFORMATION
  Report Type: Spontaneous
  Country: JP (occurrence: JP)
  Receive Date: 20250905
  Receipt Date: 20250905
  Transmission Date: 20251020
  Serious: Yes (Life-Threatening, Hospitalization)
  Sender: EISAI
  Company Number: JP-Eisai-EC-2025-196126

PATIENT
  Age: 90 Year
  Sex: Female

DRUGS (1)
  1. ARICEPT [Suspect]
     Active Substance: DONEPEZIL HYDROCHLORIDE
     Indication: Dementia Alzheimer^s type
     Route: 048

REACTIONS (4)
  - Decreased appetite [Recovering/Resolving]
  - Altered state of consciousness [Recovered/Resolved]
  - Fall [Recovered/Resolved]
  - Marasmus [Recovered/Resolved]
